FAERS Safety Report 4942858-3 (Version None)
Quarter: 2006Q1

REPORT INFORMATION
  Report Type: 
  Country: None (occurrence: None)
  Receive Date: 20060309
  Receipt Date: 20060224
  Transmission Date: 20060701
  Serious: Yes (Other)
  Sender: FDA-Public Use
  Company Number: 2006029256

PATIENT
  Age: 56 Year
  Sex: Male
  Weight: 100 kg

DRUGS (1)
  1. ZYVOX [Suspect]
     Indication: PNEUMONIA
     Dosage: 1800 MG, ORAL
     Route: 048
     Dates: start: 20051109, end: 20051128

REACTIONS (3)
  - OEDEMA [None]
  - RIGHT VENTRICULAR FAILURE [None]
  - THERAPY NON-RESPONDER [None]
